FAERS Safety Report 11668439 (Version 1)
Quarter: 2015Q4

REPORT INFORMATION
  Report Type: Report from Study
  Country: US (occurrence: US)
  Receive Date: 20151027
  Receipt Date: 20151027
  Transmission Date: 20160304
  Serious: No
  Sender: FDA-Public Use
  Company Number: US-CELGENEUS-USA-2015092677

PATIENT

DRUGS (1)
  1. REVLIMID [Suspect]
     Active Substance: LENALIDOMIDE
     Indication: PLASMA CELL MYELOMA
     Route: 048

REACTIONS (8)
  - Pruritus [Recovered/Resolved]
  - Monoclonal immunoglobulin present [Unknown]
  - Red blood cell count decreased [Unknown]
  - Adverse event [Unknown]
  - No therapeutic response [Unknown]
  - Plasma cell myeloma recurrent [Unknown]
  - White blood cell count decreased [Unknown]
  - Blood count abnormal [Unknown]
